FAERS Safety Report 9654537 (Version 1)
Quarter: 2013Q4

REPORT INFORMATION
  Report Type: Spontaneous
  Country: US (occurrence: US)
  Receive Date: 20131029
  Receipt Date: 20131029
  Transmission Date: 20140711
  Serious: No
  Sender: FDA-Public Use
  Company Number: US-BIOGENIDEC-2013BI084993

PATIENT
  Age: 69 Year
  Sex: Female

DRUGS (3)
  1. TECFIDERA [Suspect]
     Indication: MULTIPLE SCLEROSIS
     Dates: start: 2013, end: 2013
  2. AMPYRA [Concomitant]
     Route: 048
     Dates: start: 20130620, end: 2013
  3. COPAXONE [Concomitant]

REACTIONS (6)
  - Adverse event [Unknown]
  - Drug intolerance [Unknown]
  - Depression [Unknown]
  - Muscular weakness [Unknown]
  - Myalgia [Unknown]
  - Arthralgia [Unknown]
